FAERS Safety Report 10679266 (Version 1)
Quarter: 2014Q4

REPORT INFORMATION
  Report Type: Spontaneous
  Country: US (occurrence: None)
  Receive Date: 20141224
  Receipt Date: 20141224
  Transmission Date: 20150529
  Serious: Yes (Hospitalization)
  Sender: FDA-Public Use
  Company Number: None

PATIENT
  Age: 54 Year
  Sex: Male
  Weight: 74.1 kg

DRUGS (15)
  1. VITAMIN B COMPLEX [Concomitant]
     Active Substance: CYANOCOBALAMIN\DEXPANTHENOL\NIACINAMIDE\PYRIDOXINE HYDROCHLORIDE\RIBOFLAVIN 5^-PHOSPHATE SODIUM\THIAMINE HYDROCHLORIDE\VITAMIN B COMPLEX
  2. CHOLECALCIFEROL [Concomitant]
     Active Substance: CHOLECALCIFEROL
  3. VELCADE [Suspect]
     Active Substance: BORTEZOMIB
     Indication: PLASMA CELL MYELOMA
     Dosage: D1, 4, 8, 11
     Route: 042
     Dates: start: 20141209, end: 20141219
  4. HYDROMORPHONE [Concomitant]
     Active Substance: HYDROMORPHONE
  5. OXYCODONE HYDROCHLORIDE IR [Concomitant]
     Active Substance: OXYCODONE HYDROCHLORIDE
  6. POLYETHYLENE GLYCOL [Concomitant]
     Active Substance: POLYETHYLENE GLYCOLS
  7. SENNA-DOCUSATE [Concomitant]
  8. LOVENOX [Concomitant]
     Active Substance: ENOXAPARIN SODIUM
  9. NACL [Concomitant]
     Active Substance: SODIUM CHLORIDE
  10. VITAMIN E [Concomitant]
     Active Substance: .ALPHA.-TOCOPHEROL
  11. DEXAMETHASONE. [Concomitant]
     Active Substance: DEXAMETHASONE
  12. ACYCLOVIR. [Concomitant]
     Active Substance: ACYCLOVIR
  13. COLCHICINE. [Concomitant]
     Active Substance: COLCHICINE
  14. LENALIDOMIDE [Suspect]
     Active Substance: LENALIDOMIDE
     Indication: PLASMA CELL MYELOMA
     Dosage: DAYS 1-14
     Route: 048
     Dates: start: 20141209, end: 20141222
  15. OXYCODONE HCL CONTROLLED-RELEASE [Concomitant]
     Active Substance: OXYCODONE HYDROCHLORIDE

REACTIONS (2)
  - Deep vein thrombosis [None]
  - Pericarditis [None]

NARRATIVE: CASE EVENT DATE: 20141223
